FAERS Safety Report 7609002-5 (Version None)
Quarter: 2011Q3

REPORT INFORMATION
  Report Type: 
  Country: None (occurrence: None)
  Receive Date: 20110713
  Receipt Date: 20110713
  Transmission Date: 20111222
  Serious: Yes (Hospitalization)
  Sender: FDA-Public Use
  Company Number: None

PATIENT
  Weight: 96.7 kg

DRUGS (7)
  1. AVALIDE [Concomitant]
  2. BACTRIM [Concomitant]
  3. NEXIUM [Concomitant]
  4. DILANTIN [Concomitant]
  5. TEMOZOLOMIDE [Suspect]
     Dosage: 6000MG
     Dates: end: 20110707
  6. AVODART [Concomitant]
  7. DECADRON [Concomitant]

REACTIONS (4)
  - INAPPROPRIATE ANTIDIURETIC HORMONE SECRETION [None]
  - DISORIENTATION [None]
  - PNEUMONIA [None]
  - CONFUSIONAL STATE [None]
